FAERS Safety Report 18339551 (Version 2)
Quarter: 2021Q1

REPORT INFORMATION
  Report Type: Report from Study
  Country: BR (occurrence: BR)
  Receive Date: 20201002
  Receipt Date: 20210126
  Transmission Date: 20210419
  Serious: Yes (Other)
  Sender: FDA-Public Use
  Company Number: BR-BRISTOL-MYERS SQUIBB COMPANY-BMS-2020-080294

PATIENT
  Sex: Female

DRUGS (8)
  1. ALENIA [BUDESONIDE;FORMOTEROL FUMARATE] [Concomitant]
     Active Substance: BUDESONIDE\FORMOTEROL FUMARATE
     Indication: BRONCHITIS
  2. ABATACEPT [Suspect]
     Active Substance: ABATACEPT
     Dosage: 250 MILLIGRAM, QMO; 3 VIALS
     Route: 042
     Dates: start: 20200723
  3. ARADOIS [Concomitant]
     Active Substance: LOSARTAN POTASSIUM
     Indication: SINUSITIS
     Dosage: UNK
     Route: 065
  4. AEROLIN [Concomitant]
     Active Substance: ALBUTEROL
     Indication: PRODUCT USED FOR UNKNOWN INDICATION
     Dosage: UNK
     Route: 065
  5. ABATACEPT [Suspect]
     Active Substance: ABATACEPT
     Indication: RHEUMATOID ARTHRITIS
     Dosage: 250 MILLIGRAM, QMO; 3 VIALS
     Route: 042
     Dates: start: 20121128
  6. PREDNISONE. [Concomitant]
     Active Substance: PREDNISONE
     Indication: PRODUCT USED FOR UNKNOWN INDICATION
     Dosage: UNK
     Route: 065
  7. ABATACEPT [Suspect]
     Active Substance: ABATACEPT
     Dosage: 250 MILLIGRAM, QMO; 3 VIALS
     Route: 042
     Dates: start: 20201218
  8. MAGNESIUM B6 [MAGNESIUM;PYRIDOXINE HYDROCHLORIDE] [Concomitant]
     Indication: GASTRIC DISORDER
     Dosage: UNK
     Route: 065

REACTIONS (2)
  - Cataract [Recovering/Resolving]
  - Gastric disorder [Recovering/Resolving]
